FAERS Safety Report 4988291-X (Version None)
Quarter: 2006Q2

REPORT INFORMATION
  Report Type: 
  Country: None (occurrence: None)
  Receive Date: 20060425
  Receipt Date: 20060411
  Transmission Date: 20061013
  Serious: Yes (Disabling)
  Sender: FDA-Public Use
  Company Number: 2006028188

PATIENT
  Age: 32 Year
  Sex: Female
  Weight: 58 kg

DRUGS (1)
  1. ZELDOX (CAPSULES) (ZIPRASIDONE) [Suspect]
     Indication: SCHIZOPHRENIA
     Dosage: 100 MG (1 IN 1 D), ORAL
     Route: 048
     Dates: start: 20050202

REACTIONS (1)
  - GAZE PALSY [None]
